FAERS Safety Report 6715389-8 (Version None)
Quarter: 2010Q2

REPORT INFORMATION
  Report Type: 
  Country: None (occurrence: None)
  Receive Date: 20100507
  Receipt Date: 20100424
  Transmission Date: 20101027
  Serious: Yes (Other)
  Sender: FDA-Public Use
  Company Number: US-ELI_LILLY_AND_COMPANY-US201004007579

PATIENT
  Sex: Female

DRUGS (2)
  1. EVISTA [Suspect]
  2. FORTEO [Concomitant]

REACTIONS (1)
  - FEMUR FRACTURE [None]
